FAERS Safety Report 25066175 (Version 1)
Quarter: 2025Q1

REPORT INFORMATION
  Report Type: Spontaneous
  Country: US (occurrence: US)
  Receive Date: 20250312
  Receipt Date: 20250312
  Transmission Date: 20250409
  Serious: No
  Sender: ROCHE
  Company Number: US-ROCHE-10000158308

PATIENT
  Age: 37 Year
  Sex: Female
  Weight: 61.23 kg

DRUGS (2)
  1. XOLAIR [Suspect]
     Active Substance: OMALIZUMAB
     Indication: Idiopathic urticaria
     Route: 058
     Dates: start: 20240613, end: 20250220
  2. XOLAIR [Suspect]
     Active Substance: OMALIZUMAB
     Route: 058
     Dates: start: 20250220

REACTIONS (3)
  - Product dose omission issue [Unknown]
  - Off label use [Unknown]
  - Urticaria [Unknown]

NARRATIVE: CASE EVENT DATE: 20250220
